FAERS Safety Report 4312174-1 (Version None)
Quarter: 2004Q1

REPORT INFORMATION
  Report Type: 
  Country: None (occurrence: None)
  Receive Date: 20040303
  Receipt Date: 19971007
  Transmission Date: 20041129
  Serious: Yes (Hospitalization)
  Sender: FDA-Public Use
  Company Number: CL-199700100

PATIENT
  Age: 41 Year
  Sex: Female
  Weight: 73.7095 kg

DRUGS (9)
  1. INFLIXIMAB (INFLIXIMAB, RECOMBINANT) LYOPHILIZED POWDER [Suspect]
     Indication: CROHN'S DISEASE
     Dosage: 5 MG/KG INTRAVENOUS
     Route: 042
     Dates: start: 19950928
  2. PLACEBO (PLACEBO) [Suspect]
     Indication: CROHN'S DISEASE
     Dosage: INTRAVENOUS
     Route: 042
     Dates: start: 19960411
  3. PROCTOFOAM (PRAMOCAINE HYDROCHLORIDE) [Concomitant]
  4. TUCKS (TUCKS) [Concomitant]
  5. FLAGYL [Concomitant]
  6. TAPAZOLE [Concomitant]
  7. PROVERA [Concomitant]
  8. COLACE (DOCUSATE SODIUM) [Concomitant]
  9. TYLENOL [Concomitant]

REACTIONS (2)
  - GOITRE [None]
  - PAPILLARY THYROID CANCER [None]
